FAERS Safety Report 16499289 (Version 4)
Quarter: 2019Q3

REPORT INFORMATION
  Report Type: Spontaneous
  Country: US (occurrence: US)
  Receive Date: 20190701
  Receipt Date: 20190813
  Transmission Date: 20191004
  Serious: Yes (Other)
  Sender: FDA-Public Use
  Company Number: US-AMGEN-USASP2019102203

PATIENT
  Age: 50 Year
  Sex: Female
  Weight: 68.93 kg

DRUGS (3)
  1. XGEVA [Suspect]
     Active Substance: DENOSUMAB
     Indication: BONE LOSS
     Dosage: 120 MILLIGRAM, Q3MO
     Route: 058
     Dates: start: 20111213, end: 20181130
  2. IBRANCE [Concomitant]
     Active Substance: PALBOCICLIB
     Dosage: 100 MILLIGRAM
     Dates: start: 201806
  3. FASLODEX [Concomitant]
     Active Substance: FULVESTRANT
     Dosage: 100 MILLIGRAM
     Dates: start: 201806

REACTIONS (8)
  - Fatigue [Unknown]
  - Off label use [Unknown]
  - Metastases to bone [Recovered/Resolved]
  - Breast cancer metastatic [Unknown]
  - Osteonecrosis of jaw [Unknown]
  - Somnolence [Unknown]
  - Asthenia [Unknown]
  - Dyspnoea [Unknown]

NARRATIVE: CASE EVENT DATE: 201806
